FAERS Safety Report 25567295 (Version 1)
Quarter: 2025Q3

REPORT INFORMATION
  Report Type: Spontaneous
  Country: US (occurrence: US)
  Receive Date: 20250716
  Receipt Date: 20250716
  Transmission Date: 20251020
  Serious: Yes (Other)
  Sender: NOVO NORDISK
  Company Number: US-NOVOPROD-1339964

PATIENT
  Age: 49 Year
  Sex: Female
  Weight: 79.365 kg

DRUGS (4)
  1. OZEMPIC [Suspect]
     Active Substance: SEMAGLUTIDE
     Indication: Type 2 diabetes mellitus
     Dosage: 0.25 MG, QW
     Dates: start: 20230204, end: 20230225
  2. OZEMPIC [Suspect]
     Active Substance: SEMAGLUTIDE
     Dosage: 0.5 MG, QW
     Dates: start: 20230304, end: 20231201
  3. LANTUS [Concomitant]
     Active Substance: INSULIN GLARGINE
     Indication: Type 2 diabetes mellitus
     Dates: start: 20220209, end: 20231201
  4. LEVOTHYROXINE [Concomitant]
     Active Substance: LEVOTHYROXINE
     Indication: Thyroid disorder
     Dates: start: 20030101

REACTIONS (5)
  - Impaired gastric emptying [Not Recovered/Not Resolved]
  - Malnutrition [Not Recovered/Not Resolved]
  - Dehydration [Not Recovered/Not Resolved]
  - Decreased appetite [Not Recovered/Not Resolved]
  - Dyspepsia [Not Recovered/Not Resolved]

NARRATIVE: CASE EVENT DATE: 20231201
